FAERS Safety Report 5583332-3 (Version None)
Quarter: 2008Q1

REPORT INFORMATION
  Report Type: 
  Country: None (occurrence: None)
  Receive Date: 20080107
  Receipt Date: 20080102
  Transmission Date: 20080703
  Serious: Yes (Other)
  Sender: FDA-Public Use
  Company Number: US-GENENTECH-253279

PATIENT
  Sex: Female
  Weight: 82.54 kg

DRUGS (3)
  1. AVASTIN [Suspect]
     Indication: LUNG NEOPLASM MALIGNANT
     Dosage: 15 MG/KG, Q3W
     Route: 042
     Dates: start: 20071218
  2. GEMZAR [Concomitant]
     Indication: DRUG USE FOR UNKNOWN INDICATION
     Dosage: 950 MG, UNK
     Route: 042
     Dates: start: 20071018
  3. NAVELBINE [Concomitant]
     Indication: DRUG USE FOR UNKNOWN INDICATION
     Dosage: 30 MG, UNK
     Route: 042
     Dates: start: 20071018

REACTIONS (5)
  - DYSPHAGIA [None]
  - ERYTHEMA [None]
  - SNEEZING [None]
  - SWELLING FACE [None]
  - THROAT IRRITATION [None]
